FAERS Safety Report 7883534-7 (Version None)
Quarter: 2011Q4

REPORT INFORMATION
  Report Type: 
  Country: None (occurrence: None)
  Receive Date: 20111102
  Receipt Date: 20111024
  Transmission Date: 20120403
  Serious: Yes (Hospitalization)
  Sender: FDA-Public Use
  Company Number: DE-US-EMD SERONO, INC.-7087475

PATIENT
  Sex: Female

DRUGS (2)
  1. REBIF [Suspect]
     Indication: MULTIPLE SCLEROSIS
     Route: 058
     Dates: start: 20110901, end: 20110923
  2. REBIF [Suspect]
     Route: 058
     Dates: start: 20111010

REACTIONS (2)
  - ERYTHEMA [None]
  - PNEUMONIA [None]
